FAERS Safety Report 14337192 (Version 1)
Quarter: 2017Q4

REPORT INFORMATION
  Report Type: Spontaneous
  Country: FR (occurrence: FR)
  Receive Date: 20171229
  Receipt Date: 20171229
  Transmission Date: 20180321
  Serious: Yes (Other)
  Sender: FDA-Public Use
  Company Number: FR-BAYER-2017-246174

PATIENT
  Age: 85 Year
  Sex: Female
  Weight: 69 kg

DRUGS (4)
  1. CORDARONE [Suspect]
     Active Substance: AMIODARONE HYDROCHLORIDE
     Indication: ACCIDENTAL EXPOSURE TO PRODUCT
     Dosage: 1 DF, UNK
     Route: 048
     Dates: start: 20171203
  2. ASPIRINE PROTECT 100 MG [Suspect]
     Active Substance: ASPIRIN
     Indication: ACCIDENTAL EXPOSURE TO PRODUCT
     Dosage: 1 DF, UNK
     Route: 048
     Dates: start: 20171203
  3. CARDENSIEL [Suspect]
     Active Substance: BISOPROLOL FUMARATE
     Indication: ACCIDENTAL EXPOSURE TO PRODUCT
     Dosage: 1 DF, UNK
     Route: 048
     Dates: start: 20171203
  4. LASILIX [Suspect]
     Active Substance: FUROSEMIDE
     Indication: ACCIDENTAL EXPOSURE TO PRODUCT
     Dosage: .5 DF, UNK
     Route: 048
     Dates: start: 20171203

REACTIONS (3)
  - Hypotension [Recovered/Resolved]
  - Medication error [Recovered/Resolved]
  - Wrong drug [Recovered/Resolved]

NARRATIVE: CASE EVENT DATE: 20171203
